FAERS Safety Report 9158495 (Version 1)
Quarter: 2013Q1

REPORT INFORMATION
  Report Type: Spontaneous
  Country: US (occurrence: US)
  Receive Date: 20130312
  Receipt Date: 20130312
  Transmission Date: 20140127
  Serious: Yes (Other)
  Sender: FDA-Public Use
  Company Number: CHPA2013US004260

PATIENT
  Age: 66 Year
  Sex: Female

DRUGS (1)
  1. THERAFLU DAYTIME [Suspect]
     Indication: NASOPHARYNGITIS
     Dosage: UNK, ONCE/SINGLE

REACTIONS (1)
  - Neoplasm malignant [Unknown]
